FAERS Safety Report 8811741 (Version 1)
Quarter: 2012Q4

REPORT INFORMATION
  Report Type: 
  Country: US (occurrence: US)
  Receive Date: 20120927
  Receipt Date: 20120927
  Transmission Date: 20130627
  Serious: Yes (Hospitalization)
  Sender: FDA-Public Use
  Company Number: US-BAXTER-2012BAX018285

PATIENT

DRUGS (4)
  1. DOBUTAMINE [Suspect]
     Indication: STRESS ECHOCARDIOGRAPHY
     Route: 042
  2. DOBUTAMINE [Suspect]
     Indication: INTENTIONAL USE FOR UNLABELED INDICATION
     Route: 042
  3. DOBUTAMINE [Suspect]
     Route: 042
  4. ATROPINE [Suspect]
     Indication: STRESS ECHOCARDIOGRAPHY
     Dosage: 0.25-1 MG
     Route: 042

REACTIONS (1)
  - Chest pain [Unknown]
